FAERS Safety Report 5066467-3 (Version None)
Quarter: 2006Q3

REPORT INFORMATION
  Report Type: 
  Country: None (occurrence: None)
  Receive Date: 20060731
  Receipt Date: 20060731
  Transmission Date: 20061208
  Serious: Yes (Hospitalization)
  Sender: FDA-Public Use
  Company Number: None

PATIENT
  Age: 64 Year
  Sex: Male
  Weight: 74.1 kg

DRUGS (12)
  1. RABBIT ANTI - THYMOCYTE GLOBULIN [Suspect]
     Indication: MULTIPLE MYELOMA
     Dosage: 6 MG/KG IV
     Route: 042
     Dates: start: 20060712, end: 20060715
  2. RABBIT ANTI - THYMOCYTE GLOBULIN [Suspect]
     Indication: RECURRENT CANCER
     Dosage: 6 MG/KG IV
     Route: 042
     Dates: start: 20060712, end: 20060715
  3. RAPAMYCIN [Suspect]
     Indication: MULTIPLE MYELOMA
     Dosage: 1 MG PO DAILY
     Route: 048
     Dates: start: 20060712
  4. RAPAMYCIN [Suspect]
     Indication: RECURRENT CANCER
     Dosage: 1 MG PO DAILY
     Route: 048
     Dates: start: 20060712
  5. VALTREX [Concomitant]
  6. DIFLUCAN [Concomitant]
  7. BACTRIM DS [Concomitant]
  8. M.V.I. [Concomitant]
  9. HYTRIN [Concomitant]
  10. PROTONIX [Concomitant]
  11. PREDNISONE [Concomitant]
  12. OSCAL [Concomitant]

REACTIONS (4)
  - BLOOD CREATININE INCREASED [None]
  - DISEASE PROGRESSION [None]
  - ELECTROCARDIOGRAM T WAVE ABNORMAL [None]
  - HYPERKALAEMIA [None]
